FAERS Safety Report 7939489-X (Version None)
Quarter: 2011Q4

REPORT INFORMATION
  Report Type: 
  Country: None (occurrence: None)
  Receive Date: 20111125
  Receipt Date: 20111110
  Transmission Date: 20120403
  Serious: Yes (Hospitalization)
  Sender: FDA-Public Use
  Company Number: US-US-EMD SERONO, INC.-7081436

PATIENT
  Sex: Female
  Weight: 76 kg

DRUGS (13)
  1. RED YEAST RICE [Concomitant]
  2. SELENIUM [Concomitant]
  3. COQ10 [Concomitant]
  4. REBIF [Suspect]
     Indication: PRODUCT USED FOR UNKNOWN INDICATION
     Route: 058
  5. SUPER B COMPLEX [Concomitant]
  6. MULTI-VITAMIN [Concomitant]
  7. ALPHA LIPOIC [Concomitant]
  8. NEXIUM [Concomitant]
  9. VITAMIN E BAR [Concomitant]
  10. MINERAL TAB [Concomitant]
     Dosage: EXTRA STRENGTH
  11. PAPAYA ENZYME [Concomitant]
  12. GINKGO BILOBA [Concomitant]
  13. VITAMIN D [Concomitant]

REACTIONS (4)
  - INJECTION SITE PAIN [None]
  - DIVERTICULITIS [None]
  - INFLUENZA LIKE ILLNESS [None]
  - INJECTION SITE ANAESTHESIA [None]
